FAERS Safety Report 12765916 (Version 1)
Quarter: 2016Q3

REPORT INFORMATION
  Report Type: Spontaneous
  Country: FR (occurrence: FR)
  Receive Date: 20160921
  Receipt Date: 20160921
  Transmission Date: 20161109
  Serious: Yes (Hospitalization)
  Sender: FDA-Public Use
  Company Number: PHHY2016FR128015

PATIENT
  Age: 55 Year
  Sex: Female

DRUGS (3)
  1. CYTARABIN ACCORD [Suspect]
     Active Substance: CYTARABINE
     Indication: PRODUCT USED FOR UNKNOWN INDICATION
     Dosage: 171 MG, QD
     Route: 042
     Dates: start: 20120921, end: 20120927
  2. GLIVEC [Suspect]
     Active Substance: IMATINIB MESYLATE
     Indication: CHRONIC MYELOID LEUKAEMIA
     Dosage: 400 MG, BID
     Route: 048
     Dates: start: 20120921, end: 20121004
  3. ZAVEDOS [Suspect]
     Active Substance: IDARUBICIN
     Indication: PRODUCT USED FOR UNKNOWN INDICATION
     Dosage: 1.7 MG, QD
     Route: 042
     Dates: start: 20120921, end: 20120925

REACTIONS (7)
  - Renal failure [Unknown]
  - Hepatic failure [Unknown]
  - Bone marrow failure [Unknown]
  - Mucosal inflammation [Unknown]
  - Streptococcal sepsis [Unknown]
  - Face oedema [Unknown]
  - Toxic skin eruption [Unknown]

NARRATIVE: CASE EVENT DATE: 20121001
